FAERS Safety Report 16444288 (Version 1)
Quarter: 2019Q2

REPORT INFORMATION
  Report Type: Spontaneous
  Country: JP (occurrence: JP)
  Receive Date: 20190618
  Receipt Date: 20190618
  Transmission Date: 20190711
  Serious: Yes (Death, Hospitalization, Other)
  Sender: FDA-Public Use
  Company Number: JP-BAXTER-2019BAX010941

PATIENT
  Age: 7 Decade
  Sex: Male

DRUGS (2)
  1. ENDOXAN 1G [Suspect]
     Active Substance: CYCLOPHOSPHAMIDE
     Indication: SCLERODERMA
     Dosage: FIRST AND SECOND CYCLE OF PULSE THERAPY
     Route: 042
  2. ENDOXAN 1G [Suspect]
     Active Substance: CYCLOPHOSPHAMIDE
     Dosage: THIRD CYCLE OF PULSE THERAPY
     Route: 042
     Dates: start: 20190508, end: 20190508

REACTIONS (6)
  - Multiple organ dysfunction syndrome [Fatal]
  - Abdominal pain [Recovered/Resolved]
  - Renal impairment [Recovering/Resolving]
  - Ascites [Unknown]
  - Neoplasm malignant [Unknown]
  - Hepatic function abnormal [Recovering/Resolving]

NARRATIVE: CASE EVENT DATE: 201905
